FAERS Safety Report 16280702 (Version 1)
Quarter: 2019Q2

REPORT INFORMATION
  Report Type: Spontaneous
  Country: CA (occurrence: CA)
  Receive Date: 20190507
  Receipt Date: 20190507
  Transmission Date: 20190711
  Serious: Yes (Other)
  Sender: FDA-Public Use
  Company Number: CA-ROCHE-2310876

PATIENT
  Age: 41 Year
  Sex: Female

DRUGS (1)
  1. OCREVUS [Suspect]
     Active Substance: OCRELIZUMAB
     Indication: RELAPSING-REMITTING MULTIPLE SCLEROSIS
     Dosage: 300 MG/10ML  X 2 VIALS
     Route: 042
     Dates: start: 20181022

REACTIONS (1)
  - Raynaud^s phenomenon [Not Recovered/Not Resolved]

NARRATIVE: CASE EVENT DATE: 201811
